FAERS Safety Report 23395992 (Version 2)
Quarter: 2024Q1

REPORT INFORMATION
  Report Type: Spontaneous
  Country: JP (occurrence: JP)
  Receive Date: 20240112
  Receipt Date: 20240116
  Transmission Date: 20240409
  Serious: Yes (Hospitalization, Other)
  Sender: FDA-Public Use
  Company Number: None

PATIENT
  Age: 57 Year
  Sex: Female

DRUGS (10)
  1. PREDNISOLONE [Suspect]
     Active Substance: PREDNISOLONE
     Indication: Lymphoma
     Dosage: 65 MILLIGRAM, CYCLICAL (CHEMOTHERAPY WAS DELIVERED IN CYCLES OF 21 DAYS PER CYCLE )
     Route: 065
     Dates: start: 2020, end: 2020
  2. PREDNISOLONE [Suspect]
     Active Substance: PREDNISOLONE
     Dosage: UNK (R-CHOP RESUMED)
     Route: 065
  3. DOXORUBICIN [Suspect]
     Active Substance: DOXORUBICIN
     Indication: Lymphoma
     Dosage: 65 MILLIGRAM, CYCLICAL (CHEMOTHERAPY WAS DELIVERED IN CYCLES OF 21 DAYS PER CYCLE)
     Route: 065
     Dates: start: 2020, end: 2020
  4. DOXORUBICIN [Suspect]
     Active Substance: DOXORUBICIN
     Dosage: UNK (R-CHOP RESUMED)
     Route: 065
  5. RITUXIMAB [Suspect]
     Active Substance: RITUXIMAB
     Indication: Lymphoma
     Dosage: 510 MILLIGRAM, CYCLICAL (CHEMOTHERAPY WAS DELIVERED IN CYCLES OF 21 DAYS PER CYCLE )
     Route: 065
     Dates: start: 2020, end: 2020
  6. RITUXIMAB [Suspect]
     Active Substance: RITUXIMAB
     Dosage: UNK (R-CHOP RESUMED)
     Route: 065
  7. CYCLOPHOSPHAMIDE [Suspect]
     Active Substance: CYCLOPHOSPHAMIDE
     Indication: Lymphoma
     Dosage: 1030 MILLIGRAM, CYCLICAL
     Route: 065
     Dates: start: 2020, end: 2020
  8. CYCLOPHOSPHAMIDE [Suspect]
     Active Substance: CYCLOPHOSPHAMIDE
     Dosage: UNK (R-CHOP RESUMED)
     Route: 065
  9. VINCRISTINE [Suspect]
     Active Substance: VINCRISTINE
     Indication: Lymphoma
     Dosage: 1.9 MILLIGRAM, CYCLICAL (CHEMOTHERAPY WAS DELIVERED IN CYCLES OF 21 DAYS PER CYCLE  )
     Route: 065
     Dates: start: 2020, end: 2020
  10. VINCRISTINE [Suspect]
     Active Substance: VINCRISTINE
     Dosage: UNK (R-CHOP RESUMED)
     Route: 065

REACTIONS (2)
  - Liver injury [Recovered/Resolved]
  - Hepatitis E [Recovered/Resolved]

NARRATIVE: CASE EVENT DATE: 20200101
